FAERS Safety Report 8927087 (Version 3)
Quarter: 2014Q1

REPORT INFORMATION
  Report Type: Report from Study
  Country: US (occurrence: US)
  Receive Date: 20121127
  Receipt Date: 20140114
  Transmission Date: 20141002
  Serious: Yes (Hospitalization)
  Sender: FDA-Public Use
  Company Number: US-JNJFOC-20121111049

PATIENT
  Age: 10 Year
  Sex: Female
  Weight: 26.6 kg

DRUGS (2)
  1. REMICADE [Suspect]
     Indication: INFLAMMATORY BOWEL DISEASE
     Route: 042
     Dates: start: 20110407, end: 20120310
  2. 5-ASA [Concomitant]

REACTIONS (1)
  - Pouchitis [Recovered/Resolved with Sequelae]
